FAERS Safety Report 7109284-2 (Version None)
Quarter: 2010Q4

REPORT INFORMATION
  Report Type: 
  Country: None (occurrence: None)
  Receive Date: 20101117
  Receipt Date: 20101018
  Transmission Date: 20110411
  Serious: Yes (Hospitalization, Other)
  Sender: FDA-Public Use
  Company Number: DE-AMGEN-DEUCT2010000435

PATIENT

DRUGS (3)
  1. ENBREL [Suspect]
     Indication: RHEUMATOID ARTHRITIS
     Dosage: 50 MG, QWK
     Route: 058
     Dates: start: 20060526
  2. FALITHROM [Concomitant]
  3. GLUCOCORTICOIDS [Concomitant]

REACTIONS (2)
  - PARALYSIS [None]
  - PULMONARY FIBROSIS [None]
